FAERS Safety Report 23819358 (Version 1)
Quarter: 2024Q2

REPORT INFORMATION
  Report Type: Spontaneous
  Country: US (occurrence: US)
  Receive Date: 20240506
  Receipt Date: 20240506
  Transmission Date: 20240716
  Serious: No
  Sender: FDA-Public Use
  Company Number: US-AUROBINDO-AUR-APL-2024-000757

PATIENT
  Age: 20 Year
  Sex: Male

DRUGS (1)
  1. DEXTROMETHORPHAN\GUAIFENESIN [Suspect]
     Active Substance: DEXTROMETHORPHAN\GUAIFENESIN
     Indication: Product used for unknown indication
     Dosage: 1 DOSAGE FORM, DAILY
     Route: 065

REACTIONS (5)
  - Dizziness [Unknown]
  - Disorientation [Unknown]
  - Feeling drunk [Unknown]
  - Nausea [Unknown]
  - Wrong dose [Unknown]

NARRATIVE: CASE EVENT DATE: 20231229
